FAERS Safety Report 18918704 (Version 2)
Quarter: 2021Q1

REPORT INFORMATION
  Report Type: Spontaneous
  Country: GB (occurrence: GB)
  Receive Date: 20210220
  Receipt Date: 20210303
  Transmission Date: 20210420
  Serious: Yes (Other)
  Sender: FDA-Public Use
  Company Number: GB-AUROBINDO-AUR-APL-2021-006960

PATIENT
  Age: 49 Year
  Sex: Male
  Weight: 87 kg

DRUGS (6)
  1. METRONIDAZOLE. [Suspect]
     Active Substance: METRONIDAZOLE
     Indication: ILL-DEFINED DISORDER
     Dosage: 400 MILLIGRAM
     Route: 048
     Dates: start: 20201231, end: 20210106
  2. OMEPRAZOLE. [Suspect]
     Active Substance: OMEPRAZOLE
     Indication: HELICOBACTER INFECTION
  3. CLARITHROMYCIN. [Suspect]
     Active Substance: CLARITHROMYCIN
     Indication: HELICOBACTER INFECTION
  4. CLARITHROMYCIN. [Suspect]
     Active Substance: CLARITHROMYCIN
     Indication: ILL-DEFINED DISORDER
     Dosage: 500 MILLIGRAM
     Route: 048
     Dates: start: 20201231, end: 20210106
  5. METRONIDAZOLE. [Suspect]
     Active Substance: METRONIDAZOLE
     Indication: HELICOBACTER INFECTION
  6. OMEPRAZOLE. [Suspect]
     Active Substance: OMEPRAZOLE
     Indication: ILL-DEFINED DISORDER
     Dosage: 20 MILLIGRAM
     Route: 048
     Dates: start: 20201231, end: 20210106

REACTIONS (6)
  - Medication error [Unknown]
  - Cardiac flutter [Recovered/Resolved]
  - Adverse drug reaction [Not Recovered/Not Resolved]
  - Arrhythmia [Recovered/Resolved]
  - Electrocardiogram QT prolonged [Recovered/Resolved]
  - Drug interaction [Unknown]

NARRATIVE: CASE EVENT DATE: 20210103
